FAERS Safety Report 10066398 (Version 2)
Quarter: 2014Q2

REPORT INFORMATION
  Report Type: Spontaneous
  Country: JP (occurrence: JP)
  Receive Date: 20140408
  Receipt Date: 20140408
  Transmission Date: 20141212
  Serious: Yes (Hospitalization, Other)
  Sender: FDA-Public Use
  Company Number: JP-PFIZER INC-2014078185

PATIENT
  Age: 73 Year
  Sex: Male

DRUGS (3)
  1. LIPITOR [Suspect]
     Indication: DYSLIPIDAEMIA
     Dosage: 15 MG, DAILY (10 MG IN THE MORNING AND 5 MG IN THE EVENING)
     Route: 048
     Dates: start: 2011
  2. TAMIFLU [Concomitant]
     Indication: INFLUENZA
     Dosage: UNK
     Route: 048
     Dates: start: 201403
  3. GENINAX [Concomitant]
     Indication: PNEUMONIA INFLUENZAL
     Dosage: UNK
     Dates: start: 201403

REACTIONS (5)
  - Influenza [Recovered/Resolved]
  - Pneumonia influenzal [Recovered/Resolved]
  - Blood creatine phosphokinase increased [Recovered/Resolved]
  - Liver function test abnormal [Recovered/Resolved]
  - Intentional product misuse [Unknown]
